FAERS Safety Report 11116321 (Version 1)
Quarter: 2015Q2

REPORT INFORMATION
  Report Type: Report from Study
  Country: AT (occurrence: AT)
  Receive Date: 20150515
  Receipt Date: 20150515
  Transmission Date: 20150821
  Serious: Yes (Hospitalization)
  Sender: FDA-Public Use
  Company Number: AT-INCYTE CORPORATION-2015IN001195

PATIENT
  Age: 73 Year
  Sex: Female
  Weight: 70 kg

DRUGS (22)
  1. TEBOFORTAN [Concomitant]
     Active Substance: GINKGO
     Dosage: UNKNOWN
  2. GABAPENTIN HEXAL [Concomitant]
     Active Substance: GABAPENTIN
  3. ELOMEL [Concomitant]
     Dosage: UNKNWON
  4. DAFLON//DIOSMIN [Concomitant]
  5. UROSIN [Concomitant]
     Active Substance: ALLOPURINOL
  6. EUTHYROX [Concomitant]
     Active Substance: LEVOTHYROXINE SODIUM
     Dosage: UNKNOWN
  7. DIGIMERCK [Concomitant]
     Active Substance: DIGITOXIN
     Dosage: UNKNOWN
  8. SPIRIVA [Concomitant]
     Active Substance: TIOTROPIUM BROMIDE MONOHYDRATE
     Dosage: UNKNOWN
  9. VALSARCOMP [Interacting]
     Active Substance: HYDROCHLOROTHIAZIDE\VALSARTAN
     Dosage: UNKNOWN
  10. TRITTICO [Concomitant]
     Active Substance: TRAZODONE HYDROCHLORIDE
     Dosage: UNKNOWN
  11. STERIMAR [Concomitant]
     Active Substance: SEA WATER
     Dosage: UNKNOWN
  12. JAKAFI [Suspect]
     Active Substance: RUXOLITINIB
     Indication: MYELOFIBROSIS
     Dosage: 10 MG, QD
     Route: 065
  13. COLDISTOP [Concomitant]
  14. MEFENAMIC-ACID [Concomitant]
     Active Substance: MEFENAMIC ACID
  15. PANTOPRAZOLE SODIUM. [Concomitant]
     Active Substance: PANTOPRAZOLE SODIUM
     Dosage: UNKNOWN
  16. CAUMADIN [Concomitant]
     Active Substance: WARFARIN SODIUM
     Dosage: UNKNOWN
     Route: 065
  17. SINTROM [Suspect]
     Active Substance: ACENOCOUMAROL
     Indication: ATRIAL FIBRILLATION
     Dosage: ? TABLET DAILY 6X/WEEK, 1 TABLET / WEEK  (TUESDAYS)
     Route: 065
  18. LASIX [Concomitant]
     Active Substance: FUROSEMIDE
     Dosage: UNKNOWN
  19. CYKLOKAPRON [Concomitant]
     Active Substance: TRANEXAMIC ACID
     Dosage: UNKNOWN
     Dates: start: 20150202
  20. JAKAFI [Suspect]
     Active Substance: RUXOLITINIB
     Dosage: 5 MG, BID (1-0-1)
     Route: 065
  21. NOMEXOR [Concomitant]
     Active Substance: NEBIVOLOL HYDROCHLORIDE
     Dosage: UNKNOWN
  22. EFECTIN [Concomitant]
     Active Substance: VENLAFAXINE HYDROCHLORIDE
     Dosage: UNKNOWN

REACTIONS (7)
  - Epistaxis [Recovered/Resolved]
  - Restless legs syndrome [Unknown]
  - Hypertension [Unknown]
  - Atrial fibrillation [Unknown]
  - Chronic obstructive pulmonary disease [Unknown]
  - Thrombocytosis [Unknown]
  - Splenomegaly [Unknown]

NARRATIVE: CASE EVENT DATE: 20150124
